FAERS Safety Report 8041027-0 (Version None)
Quarter: 2012Q1

REPORT INFORMATION
  Report Type: 
  Country: None (occurrence: None)
  Receive Date: 20120109
  Receipt Date: 20111227
  Transmission Date: 20120608
  Serious: Yes (Hospitalization)
  Sender: FDA-Public Use
  Company Number: 2011P1015333

PATIENT
  Age: 44 Year
  Sex: Female

DRUGS (4)
  1. BUPROPION HYDROCHLORIDE [Concomitant]
  2. MIDAZOLAM [Suspect]
     Indication: SEDATIVE THERAPY
     Dosage: 4 MG;X1;
  3. FENTANYL [Suspect]
     Indication: SEDATIVE THERAPY
     Dosage: 125 MG;X1;
  4. PROPRANOLOL [Concomitant]

REACTIONS (3)
  - AMNESIA [None]
  - SOMNOLENCE [None]
  - SOMATOFORM DISORDER [None]
